FAERS Safety Report 8014637-4 (Version None)
Quarter: 2011Q4

REPORT INFORMATION
  Report Type: 
  Country: None (occurrence: None)
  Receive Date: 20111229
  Receipt Date: 20111212
  Transmission Date: 20120403
  Serious: Yes (Other)
  Sender: FDA-Public Use
  Company Number: PHFR2011IE05219

PATIENT
  Sex: Female

DRUGS (4)
  1. AMISULPRIDE [Concomitant]
     Indication: SCHIZOPHRENIA
     Dosage: 200 MG, DAILY
     Route: 048
  2. CLOZARIL [Suspect]
     Indication: SCHIZOPHRENIA
     Dosage: 400 MG,
     Route: 048
     Dates: start: 20060425
  3. VALPROIC ACID [Concomitant]
     Indication: SCHIZOPHRENIA
     Dosage: 1300 MG, DAILY
     Route: 048
  4. DULOXETINE HYDROCHLORIDE [Concomitant]
     Indication: SCHIZOPHRENIA
     Dosage: 60 MG, DAILY
     Route: 048

REACTIONS (5)
  - WEIGHT INCREASED [None]
  - VOMITING [None]
  - NAUSEA [None]
  - DIZZINESS [None]
  - INFECTION [None]
